FAERS Safety Report 8125870-5 (Version None)
Quarter: 2012Q1

REPORT INFORMATION
  Report Type: 
  Country: None (occurrence: None)
  Receive Date: 20120206
  Receipt Date: 20120125
  Transmission Date: 20120608
  Serious: Yes (Life-Threatening, Other)
  Sender: FDA-Public Use
  Company Number: 2012P1003285

PATIENT
  Age: 64 Year
  Sex: Female
  Weight: 50.3493 kg

DRUGS (5)
  1. PREDNISOLONE [Suspect]
  2. CHANTIX [Suspect]
     Indication: SMOKING CESSATION THERAPY
     Dates: start: 20090101, end: 20090101
  3. CYMBALTA [Concomitant]
  4. CARISOPRODOL TABLETS USP 350MG (NO PREF. NAME) [Suspect]
     Indication: MUSCLE SPASMS
     Dosage: 350 MG;QD;
  5. PLAQUENIL [Concomitant]

REACTIONS (2)
  - NEOPLASM MALIGNANT [None]
  - EXOSTOSIS [None]
